FAERS Safety Report 10258242 (Version 1)
Quarter: 2014Q2

REPORT INFORMATION
  Report Type: Spontaneous
  Country: US (occurrence: US)
  Receive Date: 20140625
  Receipt Date: 20140625
  Transmission Date: 20141212
  Serious: No
  Sender: FDA-Public Use
  Company Number: US-BAYER-2014-095144

PATIENT
  Sex: Female

DRUGS (3)
  1. ALEVE TABLET [Suspect]
     Indication: ANALGESIC THERAPY
     Dosage: 1 DF, PRN
     Route: 048
     Dates: start: 201406
  2. CALCIUM [Concomitant]
  3. MAGNESIUM [Concomitant]

REACTIONS (1)
  - Urticaria [Not Recovered/Not Resolved]
